FAERS Safety Report 7382353-8 (Version None)
Quarter: 2011Q1

REPORT INFORMATION
  Report Type: 
  Country: None (occurrence: None)
  Receive Date: 20110329
  Receipt Date: 20110228
  Transmission Date: 20110831
  Serious: Yes (Hospitalization, Other)
  Sender: FDA-Public Use
  Company Number: US-BAYER-2010-003308

PATIENT
  Sex: Female
  Weight: 113.38 kg

DRUGS (8)
  1. SINGULAIR [Concomitant]
     Dosage: 10 MG, QD
     Route: 048
  2. HYDROCODONE BITARTRATE [Concomitant]
     Route: 048
  3. AMOXICILLIN [Concomitant]
     Dosage: 500 MG, BID
     Route: 048
  4. CEPHALEXIN [Concomitant]
     Dosage: 500 MG, TID
     Route: 048
  5. YASMIN [Suspect]
     Indication: ORAL CONTRACEPTION
     Dosage: UNK
     Route: 048
     Dates: start: 20050801, end: 20060401
  6. YAZ [Suspect]
     Indication: ORAL CONTRACEPTION
     Dosage: UNK
     Route: 048
     Dates: start: 20070901, end: 20091001
  7. CIPRO [Concomitant]
  8. DEXTROPROPOXYPHENE NAPSILATE [Concomitant]
     Route: 048

REACTIONS (3)
  - CHOLECYSTITIS CHRONIC [None]
  - GALLBLADDER CHOLESTEROLOSIS [None]
  - CHOLECYSTECTOMY [None]
